FAERS Safety Report 7002466-X (Version None)
Quarter: 2010Q3

REPORT INFORMATION
  Report Type: 
  Country: None (occurrence: None)
  Receive Date: 20100920
  Receipt Date: 20100910
  Transmission Date: 20110219
  Serious: Yes (Other)
  Sender: FDA-Public Use
  Company Number: JP-BRISTOL-MYERS SQUIBB COMPANY-15232960

PATIENT
  Age: 60 Year
  Sex: Male

DRUGS (6)
  1. METGLUCO [Suspect]
     Indication: DIABETES MELLITUS
     Dosage: 1500MG/D FORMULATION:TABS 6JUL10 DOSE INCREASED 250MG,6TABS 20JUL10 DRUG WITHDRAWN
     Route: 048
     Dates: start: 20100706, end: 20100717
  2. AMARYL [Concomitant]
     Indication: DIABETES MELLITUS
     Dosage: 6JUL10 ONGOING
     Route: 048
     Dates: start: 20100427
  3. SEIBULE [Concomitant]
     Indication: DIABETES MELLITUS
     Dosage: 6JUL10 ONGOING
     Route: 048
     Dates: start: 20100427
  4. VILDAGLIPTIN [Concomitant]
     Indication: DIABETES MELLITUS
     Route: 048
     Dates: start: 20100706
  5. ACTOS [Concomitant]
     Indication: DIABETES MELLITUS
     Dosage: ONGOING
     Route: 048
     Dates: start: 20100427
  6. SITAGLIPTIN PHOSPHATE [Concomitant]
     Indication: DIABETES MELLITUS
     Route: 048
     Dates: start: 20100427

REACTIONS (4)
  - ABDOMINAL PAIN [None]
  - DECREASED APPETITE [None]
  - DIARRHOEA [None]
  - MYALGIA [None]
